FAERS Safety Report 11149383 (Version 2)
Quarter: 2015Q2

REPORT INFORMATION
  Report Type: Spontaneous
  Country: JP (occurrence: JP)
  Receive Date: 20150529
  Receipt Date: 20150625
  Transmission Date: 20150821
  Serious: Yes (Death)
  Sender: FDA-Public Use
  Company Number: JP-BAYER-2015-272176

PATIENT
  Age: 84 Year
  Sex: Male
  Weight: 40 kg

DRUGS (7)
  1. FUROSEMIDE. [Concomitant]
     Active Substance: FUROSEMIDE
     Indication: COLON CANCER
     Dosage: UNK
     Route: 048
  2. SPIRONOLACTONE. [Concomitant]
     Active Substance: SPIRONOLACTONE
     Indication: COLON CANCER
     Dosage: UNK
     Route: 048
  3. LOXOPROFEN [Concomitant]
     Active Substance: LOXOPROFEN
     Indication: COLON CANCER
     Dosage: UNK
     Route: 048
  4. REBAMIPIDE [Concomitant]
     Active Substance: REBAMIPIDE
     Indication: COLON CANCER
     Dosage: UNK
     Route: 048
  5. MAGLAX [Concomitant]
     Active Substance: MAGNESIUM OXIDE
     Indication: COLON CANCER
     Dosage: UNK
     Route: 048
  6. STIVARGA [Suspect]
     Active Substance: REGORAFENIB
     Indication: COLORECTAL CANCER
     Dosage: 160 MG, QD
     Route: 048
     Dates: start: 20150428, end: 20150505
  7. PYDOXAL [Concomitant]
     Active Substance: PYRIDOXAL
     Indication: PALMAR-PLANTAR ERYTHRODYSAESTHESIA SYNDROME
     Dosage: UNK
     Route: 048

REACTIONS (1)
  - Interstitial lung disease [Fatal]

NARRATIVE: CASE EVENT DATE: 20150512
